FAERS Safety Report 4507573-9 (Version None)
Quarter: 2004Q4

REPORT INFORMATION
  Report Type: 
  Country: None (occurrence: None)
  Receive Date: 20040928
  Receipt Date: 20040723
  Transmission Date: 20050328
  Serious: No
  Sender: FDA-Public Use
  Company Number: 04P-163-0267948-00

PATIENT
  Age: 57 Year
  Sex: Female
  Weight: 58.9676 kg

DRUGS (11)
  1. HUMIRA [Suspect]
     Indication: RHEUMATOID ARTHRITIS
     Dosage: 40 MG, 1 IN 2 WK, SUBCUTANEOUS
     Route: 058
     Dates: start: 20040602, end: 20040729
  2. METHADONE [Concomitant]
  3. VALSARTAN [Concomitant]
  4. ACETYLSALICYLIC ACID [Concomitant]
  5. ALPRAZOLAM [Concomitant]
  6. PREDNISONE [Concomitant]
  7. FUROSEMIDE [Concomitant]
  8. TRAZODONE HCL [Concomitant]
  9. POTASSIUM CHLORIDE [Concomitant]
  10. CALCIUM WITH VITAMIN D [Concomitant]
  11. CRANBERRY PILLS [Concomitant]

REACTIONS (1)
  - BREAST CANCER [None]
